FAERS Safety Report 9378925 (Version 1)
Quarter: 2013Q3

REPORT INFORMATION
  Report Type: Spontaneous
  Country: US (occurrence: US)
  Receive Date: 20130702
  Receipt Date: 20130702
  Transmission Date: 20140515
  Serious: No
  Sender: FDA-Public Use
  Company Number: US-PFIZER INC-2013193640

PATIENT
  Sex: Female

DRUGS (1)
  1. ADVIL COLD AND SINUS [Suspect]
     Dosage: UNK

REACTIONS (3)
  - Rash [Unknown]
  - Pruritus [Unknown]
  - Rash erythematous [Unknown]
